FAERS Safety Report 6676737-0 (Version None)
Quarter: 2010Q2

REPORT INFORMATION
  Report Type: 
  Country: None (occurrence: None)
  Receive Date: 20100409
  Receipt Date: 20100409
  Transmission Date: 20101027
  Serious: Yes (Other)
  Sender: FDA-Public Use
  Company Number: None

PATIENT
  Sex: Female

DRUGS (1)
  1. ADVAIR DISKUS 250/50 [Suspect]
     Dosage: 1 PUFF BID INHALANT
     Route: 055
     Dates: start: 20100222, end: 20100225

REACTIONS (3)
  - ASTHENIA [None]
  - HYPOAESTHESIA [None]
  - TREMOR [None]
